FAERS Safety Report 4764588-3 (Version None)
Quarter: 2005Q3

REPORT INFORMATION
  Report Type: 
  Country: None (occurrence: None)
  Receive Date: 20050907
  Receipt Date: 20050824
  Transmission Date: 20060218
  Serious: Yes (Hospitalization, Other)
  Sender: FDA-Public Use
  Company Number: 2005-03202

PATIENT
  Age: 23 Year
  Sex: Female

DRUGS (4)
  1. NIFEDIPINE [Suspect]
     Indication: TOCOLYSIS
     Dosage: 10 MG X 4 DOSES THEN 20MG Q3-4H, ORAL
     Route: 048
  2. ATOSIBAN (ATOSIBAN) [Concomitant]
  3. STEROIDS [Concomitant]
  4. INDOMETHACIN [Concomitant]

REACTIONS (4)
  - COMPLICATION OF PREGNANCY [None]
  - DRUG EXPOSURE DURING PREGNANCY [None]
  - HYPOTENSION [None]
  - PLACENTAL DISORDER [None]
